FAERS Safety Report 25652991 (Version 2)
Quarter: 2025Q3

REPORT INFORMATION
  Report Type: Spontaneous
  Country: US (occurrence: US)
  Receive Date: 20250807
  Receipt Date: 20250929
  Transmission Date: 20251021
  Serious: No
  Sender: LUPIN
  Company Number: US-LUPIN PHARMACEUTICALS INC.-2025-06984

PATIENT
  Age: 46 Year
  Weight: 235 kg

DRUGS (6)
  1. ALBUTEROL SULFATE [Suspect]
     Active Substance: ALBUTEROL SULFATE
     Indication: Asthma
  2. LOSARTAN [Concomitant]
     Active Substance: LOSARTAN
     Indication: Product used for unknown indication
     Route: 065
  3. VITAMIN D [Concomitant]
     Active Substance: VITAMIN D NOS
     Indication: Product used for unknown indication
     Route: 065
  4. MONTELUKAST [Concomitant]
     Active Substance: MONTELUKAST
     Indication: Product used for unknown indication
     Route: 065
  5. SINGULAIR [Concomitant]
     Active Substance: MONTELUKAST SODIUM
     Indication: Product used for unknown indication
     Route: 065
  6. TERIFLUNOMIDE [Concomitant]
     Active Substance: TERIFLUNOMIDE
     Indication: Product used for unknown indication
     Route: 065

REACTIONS (3)
  - Wrong technique in product usage process [Unknown]
  - Device deposit issue [Unknown]
  - No adverse event [Unknown]
